FAERS Safety Report 4792208-0 (Version None)
Quarter: 2005Q4

REPORT INFORMATION
  Report Type: 
  Country: None (occurrence: None)
  Receive Date: 20051006
  Receipt Date: 20050929
  Transmission Date: 20060501
  Serious: Yes (Hospitalization)
  Sender: FDA-Public Use
  Company Number: T05-USA-03494-01

PATIENT
  Age: 54 Year
  Sex: Female
  Weight: 84.369 kg

DRUGS (11)
  1. MEMANTINE HCL [Suspect]
     Indication: BIPOLAR DISORDER
     Dosage: 30 MG QD PO
     Route: 048
     Dates: start: 20050822, end: 20050828
  2. MEMANTINE HCL [Suspect]
     Indication: MANIA
     Dosage: 30 MG QD PO
     Route: 048
     Dates: start: 20050822, end: 20050828
  3. RISPERIDONE [Suspect]
     Indication: BIPOLAR DISORDER
     Dosage: 3 MG BID PO
     Route: 048
     Dates: start: 20050829, end: 20050913
  4. ACETAMINOPHEN [Concomitant]
  5. ZOLPIDEM TARTRATE [Concomitant]
  6. HUMULIN REGULAR (INSULIN HUMAN) [Concomitant]
  7. PROTONIX [Concomitant]
  8. METFORMIN [Concomitant]
  9. LISINOPRIL [Concomitant]
  10. REGLAN [Concomitant]
  11. PHENERGAN ^AVENTIS PHARMA^ (PROMETHAZINE HYDROCHLORIDE) [Concomitant]

REACTIONS (8)
  - ABNORMAL BEHAVIOUR [None]
  - BIPOLAR DISORDER [None]
  - CONDITION AGGRAVATED [None]
  - CONTUSION [None]
  - DEPRESSION [None]
  - FALL [None]
  - MANIA [None]
  - PRESSURE OF SPEECH [None]
